FAERS Safety Report 15689786 (Version 1)
Quarter: 2018Q4

REPORT INFORMATION
  Report Type: Spontaneous
  Country: US (occurrence: US)
  Receive Date: 20181126
  Receipt Date: 20181126
  Transmission Date: 20190205
  Serious: No
  Sender: FDA-Public Use
  Company Number: None

PATIENT
  Age: 76 Year
  Sex: Male

DRUGS (17)
  1. LABETALOL [Concomitant]
     Active Substance: LABETALOL\LABETALOL HYDROCHLORIDE
  2. ONDANSETRON [Concomitant]
     Active Substance: ONDANSETRON
  3. FINNSTERIDE [Concomitant]
  4. PANTOPRAZOLE [Concomitant]
     Active Substance: PANTOPRAZOLE
  5. CEFEPIME [Suspect]
     Active Substance: CEFEPIME HYDROCHLORIDE
     Indication: OSTEOMYELITIS
     Dosage: ?          OTHER FREQUENCY:EVERY 12 HOURS ;?
     Route: 042
     Dates: start: 20180712, end: 20180817
  6. ATORVASTATIN [Concomitant]
     Active Substance: ATORVASTATIN
  7. INSULIN [Concomitant]
     Active Substance: INSULIN NOS
  8. LEVOFLOXACIN. [Concomitant]
     Active Substance: LEVOFLOXACIN
  9. METFORMIN [Concomitant]
     Active Substance: METFORMIN HYDROCHLORIDE
  10. ARTIFICIAL TEARS [Concomitant]
     Active Substance: GLYCERIN\HYPROMELLOSES\POLYETHYLENE GLYCOL 400
  11. DILTIAREM [Concomitant]
  12. ALPRAZOLAM. [Suspect]
     Active Substance: ALPRAZOLAM
  13. ENALAPRIL [Concomitant]
     Active Substance: ENALAPRIL
  14. SODIUM CHLORIDE. [Concomitant]
     Active Substance: SODIUM CHLORIDE
  15. RANITIDINE. [Concomitant]
     Active Substance: RANITIDINE
  16. MIRTAZAPINE. [Concomitant]
     Active Substance: MIRTAZAPINE
  17. OXYCODONE [Concomitant]
     Active Substance: OXYCODONE

REACTIONS (5)
  - Renal impairment [None]
  - Asthenia [None]
  - Nausea [None]
  - Decreased appetite [None]
  - Osteomyelitis [None]

NARRATIVE: CASE EVENT DATE: 20180815
